FAERS Safety Report 5471839-9 (Version None)
Quarter: 2007Q3

REPORT INFORMATION
  Report Type: 
  Country: None (occurrence: None)
  Receive Date: 20070928
  Receipt Date: 20070621
  Transmission Date: 20080115
  Serious: No
  Sender: FDA-Public Use
  Company Number: US-BRISTOL-MYERS SQUIBB COMPANY-13822358

PATIENT
  Age: 37 Year
  Sex: Female
  Weight: 136 kg

DRUGS (4)
  1. DEFINITY [Suspect]
     Dates: start: 20070621, end: 20070621
  2. LASIX [Concomitant]
  3. LACTULOSE [Concomitant]
  4. SPIRONOLACTONE [Concomitant]

REACTIONS (1)
  - NECK PAIN [None]
